FAERS Safety Report 12945428 (Version 1)
Quarter: 2016Q4

REPORT INFORMATION
  Report Type: Spontaneous
  Country: US (occurrence: US)
  Receive Date: 20161116
  Receipt Date: 20161116
  Transmission Date: 20170207
  Serious: No
  Sender: FDA-Public Use
  Company Number: US-JNJFOC-20161008560

PATIENT
  Age: 70 Year
  Sex: Female
  Weight: 63.96 kg

DRUGS (3)
  1. WOMENS ROGAINE UNSCENTED [Suspect]
     Active Substance: MINOXIDIL
     Indication: ALOPECIA
     Dosage: 1/2 CAP, ONCE
     Route: 061
     Dates: start: 20161006, end: 20161006
  2. METHIMAZOLE. [Concomitant]
     Active Substance: METHIMAZOLE
     Indication: THYROID DISORDER
     Dosage: DAILY
     Route: 065
  3. WOMENS ROGAINE UNSCENTED [Suspect]
     Active Substance: MINOXIDIL
     Route: 061

REACTIONS (2)
  - Musculoskeletal stiffness [Recovering/Resolving]
  - Drug administration error [Recovering/Resolving]

NARRATIVE: CASE EVENT DATE: 20161006
